FAERS Safety Report 21789558 (Version 1)
Quarter: 2022Q4

REPORT INFORMATION
  Report Type: Spontaneous
  Country: US (occurrence: US)
  Receive Date: 20221228
  Receipt Date: 20221228
  Transmission Date: 20230113
  Serious: Yes (Other)
  Sender: FDA-Public Use
  Company Number: US-PFIZER INC-PV202200130840

PATIENT
  Age: 18 Year
  Sex: Female

DRUGS (8)
  1. DOXORUBICIN HYDROCHLORIDE [Suspect]
     Active Substance: DOXORUBICIN HYDROCHLORIDE
     Dosage: UNK (FIRST DOSE OF BV + AVD)
  2. DOXORUBICIN HYDROCHLORIDE [Suspect]
     Active Substance: DOXORUBICIN HYDROCHLORIDE
     Dosage: UNK (SECOND DOSE AT A REDUCED DOSE)
  3. BRENTUXIMAB VEDOTIN [Suspect]
     Active Substance: BRENTUXIMAB VEDOTIN
     Indication: Chronic lymphocytic leukaemia stage 4
     Dosage: UNK (FIRST DOSE OF BV + AVD)
  4. BRENTUXIMAB VEDOTIN [Suspect]
     Active Substance: BRENTUXIMAB VEDOTIN
     Indication: Sickle cell anaemia
     Dosage: UNK (SECOND DOSE AT A REDUCED DOSE)
  5. VINBLASTINE SULFATE [Concomitant]
     Active Substance: VINBLASTINE SULFATE
     Indication: Chronic lymphocytic leukaemia stage 4
  6. VINBLASTINE SULFATE [Concomitant]
     Active Substance: VINBLASTINE SULFATE
     Indication: Sickle cell anaemia
  7. DACARBAZINE [Concomitant]
     Active Substance: DACARBAZINE
     Indication: Chronic lymphocytic leukaemia stage 4
  8. DACARBAZINE [Concomitant]
     Active Substance: DACARBAZINE
     Indication: Sickle cell anaemia

REACTIONS (1)
  - Neuropathy peripheral [Recovering/Resolving]
